FAERS Safety Report 14882257 (Version 1)
Quarter: 2018Q2

REPORT INFORMATION
  Report Type: Spontaneous
  Country: US (occurrence: US)
  Receive Date: 20180425
  Receipt Date: 20180425
  Transmission Date: 20180711
  Serious: Yes (Disabling)
  Sender: FDA-Public Use
  Company Number: None

PATIENT
  Age: 31 Month
  Sex: Male
  Weight: 12.15 kg

DRUGS (3)
  1. CULTURELLE FOR KIDS PROBIOTIC [Concomitant]
  2. CLEARLAX [Suspect]
     Active Substance: POLYETHYLENE GLYCOL 3350
     Indication: CONSTIPATION
     Dosage: ?          QUANTITY:8 GRAMS;?
     Route: 048
     Dates: start: 20180226, end: 20180321
  3. MOMMY^S BLISS ORGANIC VITAMIN D DROPS [Concomitant]

REACTIONS (3)
  - Anxiety [None]
  - Mood swings [None]
  - Sensory disturbance [None]

NARRATIVE: CASE EVENT DATE: 20180302
